FAERS Safety Report 6932815-X (Version None)
Quarter: 2010Q3

REPORT INFORMATION
  Report Type: 
  Country: None (occurrence: None)
  Receive Date: 20100819
  Receipt Date: 20100806
  Transmission Date: 20110219
  Serious: Yes (Hospitalization, Other)
  Sender: FDA-Public Use
  Company Number: US-ROCHE-720158

PATIENT
  Sex: Male
  Weight: 73 kg

DRUGS (15)
  1. BEVACIZUMAB [Suspect]
     Dosage: FORM: NOT PROVIDED
     Route: 042
     Dates: start: 20100309
  2. BEVACIZUMAB [Suspect]
     Route: 042
     Dates: start: 20100402
  3. BEVACIZUMAB [Suspect]
     Route: 042
     Dates: start: 20100514
  4. IPILIMUMAB [Suspect]
     Dosage: FREQUENCY: 3 WEEKS X 4, 3 MOS
     Route: 042
     Dates: start: 20100309
  5. IPILIMUMAB [Suspect]
     Dosage: FREQUENCY: 3 WEEKS X 4, 3 MOS
     Route: 042
     Dates: start: 20100402
  6. IPILIMUMAB [Suspect]
     Dosage: FREQUENCY: 3 WEEKS X4, 3 MOS
     Route: 042
     Dates: start: 20100514
  7. ADVAIR DISKUS 100/50 [Concomitant]
     Dates: start: 20100527, end: 20100729
  8. AZITHROMYCIN [Concomitant]
     Dates: start: 20100527, end: 20100606
  9. HYCODAN [Concomitant]
     Dates: start: 20100713, end: 20100729
  10. HYDROXYZINE HCL [Concomitant]
     Dates: start: 20100525, end: 20100729
  11. IMODIUM A-D [Concomitant]
     Dates: start: 20100121, end: 20100527
  12. PEPCID AC [Concomitant]
     Dates: start: 20100309, end: 20100527
  13. TEMODAR [Concomitant]
     Dates: start: 20100715, end: 20100728
  14. TESSALON [Concomitant]
     Dates: start: 20100525, end: 20100803
  15. ZOFRAN [Concomitant]
     Dates: start: 20100715, end: 20100729

REACTIONS (3)
  - AUTOIMMUNE HEPATITIS [None]
  - CHEST PAIN [None]
  - DISEASE PROGRESSION [None]
